FAERS Safety Report 4780269-4 (Version None)
Quarter: 2005Q3

REPORT INFORMATION
  Report Type: 
  Country: None (occurrence: None)
  Receive Date: 20050927
  Receipt Date: 20050907
  Transmission Date: 20060218
  Serious: Yes (Hospitalization)
  Sender: FDA-Public Use
  Company Number: US-ROCHE-417004

PATIENT
  Sex: Female
  Weight: 3.1 kg

DRUGS (3)
  1. XENICAL [Suspect]
     Indication: WEIGHT CONTROL
     Dates: start: 20000615
  2. XENICAL [Suspect]
     Dates: end: 20030615
  3. XENICAL [Suspect]
     Dates: start: 20050815

REACTIONS (6)
  - DRUG EXPOSURE DURING PREGNANCY [None]
  - GASTROOESOPHAGEAL REFLUX DISEASE [None]
  - NORMAL NEWBORN [None]
  - PREMATURE LABOUR [None]
  - PREMATURE RUPTURE OF MEMBRANES [None]
  - PREMATURE SEPARATION OF PLACENTA [None]
